FAERS Safety Report 4524364-3 (Version None)
Quarter: 2004Q4

REPORT INFORMATION
  Report Type: 
  Country: None (occurrence: None)
  Receive Date: 20041119
  Receipt Date: 20040824
  Transmission Date: 20050328
  Serious: No
  Sender: FDA-Public Use
  Company Number: 208611

PATIENT
  Age: 61 Year
  Sex: Male
  Weight: 88 kg

DRUGS (7)
  1. RAPTIVA [Suspect]
     Indication: PSORIASIS
     Dosage: 0.09 UNK, 1/WEEK, SUBCUTANEOUS
     Route: 058
     Dates: start: 20031101
  2. VIOXX [Concomitant]
  3. HYDROCHLOROTHIAZIDE [Concomitant]
  4. ATENOLOL [Concomitant]
  5. LOTENSIN HCT (HYDROCHLOROTHIAZIDE, BENAZEPRIL HYDROCHLORIDE) [Concomitant]
  6. LIPITOR [Concomitant]
  7. ASPIRIN [Concomitant]

REACTIONS (2)
  - NASAL ABSCESS [None]
  - RASH PAPULAR [None]
